FAERS Safety Report 23198121 (Version 1)
Quarter: 2023Q4

REPORT INFORMATION
  Report Type: Spontaneous
  Country: CN (occurrence: None)
  Receive Date: 20231117
  Receipt Date: 20231117
  Transmission Date: 20240109
  Serious: Yes (Other)
  Sender: FDA-Public Use
  Company Number: 2023A258159

PATIENT
  Age: 20454 Day
  Sex: Female

DRUGS (4)
  1. OLAPARIB [Suspect]
     Active Substance: OLAPARIB
     Indication: Neoplasm
     Route: 048
     Dates: start: 20231014, end: 20231104
  2. DOCETAXEL [Suspect]
     Active Substance: DOCETAXEL\DOCETAXEL ANHYDROUS
     Indication: Neoplasm
     Route: 041
     Dates: start: 20231014, end: 20231014
  3. NEDAPLATIN [Suspect]
     Active Substance: NEDAPLATIN
     Indication: Neoplasm
     Route: 041
     Dates: start: 20231014, end: 20231014
  4. OPRELVEKIN [Concomitant]
     Active Substance: OPRELVEKIN

REACTIONS (1)
  - Myelosuppression [Unknown]

NARRATIVE: CASE EVENT DATE: 20231104
